FAERS Safety Report 4400710-6 (Version None)
Quarter: 2004Q3

REPORT INFORMATION
  Report Type: 
  Country: None (occurrence: None)
  Receive Date: 20040714
  Receipt Date: 20040629
  Transmission Date: 20050211
  Serious: Yes (Hospitalization, Disabling)
  Sender: FDA-Public Use
  Company Number: 2004-UK-00630UK (0)

PATIENT
  Age: 62 Year
  Sex: Male

DRUGS (7)
  1. SPIRIVA [Suspect]
     Indication: CHRONIC OBSTRUCTIVE AIRWAYS DISEASE
     Dosage: 18 MCG (18 MCG)  IH
     Route: 055
     Dates: start: 20031023, end: 20031117
  2. SPIRIVA [Suspect]
     Indication: CHRONIC OBSTRUCTIVE AIRWAYS DISEASE
     Dosage: 18 MCG (18 MCG)  IH
     Route: 055
     Dates: start: 20040501, end: 20040503
  3. AMLODIPINE [Concomitant]
  4. BENDROFLUAZIDE(BENDROFLUMETHIAZIDE) [Concomitant]
  5. ALBUTEROL SULFATE [Concomitant]
  6. IPRATROPIUM BROMIDE [Concomitant]
  7. SERETIDE(SALMETEROL) [Concomitant]

REACTIONS (2)
  - HAEMATURIA [None]
  - HENOCH-SCHONLEIN PURPURA [None]
